FAERS Safety Report 21228514 (Version 1)
Quarter: 2022Q3

REPORT INFORMATION
  Report Type: Spontaneous
  Country: PL (occurrence: PL)
  Receive Date: 20220818
  Receipt Date: 20220818
  Transmission Date: 20221027
  Serious: Yes (Other)
  Sender: FDA-Public Use
  Company Number: PL-SUN PHARMACEUTICAL INDUSTRIES LTD-2022RR-348865

PATIENT
  Age: 40 Year
  Sex: Female

DRUGS (14)
  1. ATORVASTATIN [Interacting]
     Active Substance: ATORVASTATIN
     Indication: Dyslipidaemia
     Dosage: 20 MG ONCE A DAY
     Route: 065
  2. BIOTIN [Suspect]
     Active Substance: BIOTIN
     Indication: Alopecia
     Dosage: 20 MG PER DAY
     Route: 065
  3. CRANBERRY [Interacting]
     Active Substance: CRANBERRY
     Indication: Dysuria
     Dosage: UNK
     Route: 065
  4. CRANBERRY [Interacting]
     Active Substance: CRANBERRY
     Indication: Vaginal discharge
     Dosage: UNK
     Route: 065
  5. QUETIAPINE [Suspect]
     Active Substance: QUETIAPINE
     Indication: Depression
     Dosage: 200 MILLIGRAM, DAILY, DOSE WAS INCREASED TO 200 MG PER DAY, BEFORE BEDTIME
     Route: 065
  6. QUETIAPINE [Suspect]
     Active Substance: QUETIAPINE
     Dosage: 150 MG DAILY
     Route: 065
  7. PAROXETINE [Suspect]
     Active Substance: PAROXETINE
     Indication: Depression
     Dosage: DOSE WAS INCREASED TO 40 MG PER DAY
     Route: 065
  8. PAROXETINE [Suspect]
     Active Substance: PAROXETINE
     Dosage: 20 MG PER DAY
     Route: 065
  9. FLUCONAZOLE [Interacting]
     Active Substance: FLUCONAZOLE
     Indication: Vaginal discharge
     Dosage: 200 MG OF PER DAY
     Route: 065
  10. FLUCONAZOLE [Interacting]
     Active Substance: FLUCONAZOLE
     Indication: Micturition disorder
     Dosage: 200 MG OF PER DAY
     Route: 065
  11. LEVOTHYROXINE [Suspect]
     Active Substance: LEVOTHYROXINE
     Indication: Hypothyroidism
     Dosage: UNK
     Route: 065
  12. ETHAMSYLATE [Concomitant]
     Active Substance: ETHAMSYLATE
     Indication: Epistaxis
     Dosage: UNK
     Route: 065
  13. PREGABALIN [Concomitant]
     Active Substance: PREGABALIN
     Indication: Depression
     Dosage: UNK
     Route: 065
  14. ROSUVASTATIN [Concomitant]
     Active Substance: ROSUVASTATIN
     Indication: Dyslipidaemia
     Dosage: UNK
     Route: 065

REACTIONS (17)
  - Thrombocytopenia [Recovered/Resolved]
  - Hypothyroidism [Recovered/Resolved]
  - Asthenia [Recovered/Resolved]
  - Drug interaction [Recovered/Resolved]
  - Leukopenia [Recovered/Resolved]
  - Disturbance in attention [Recovered/Resolved]
  - Dysuria [Recovered/Resolved]
  - Drug interaction [Recovered/Resolved]
  - Somnolence [Recovered/Resolved]
  - Epistaxis [Recovered/Resolved]
  - Disturbance in attention [Unknown]
  - Vaginal discharge [Unknown]
  - Somnolence [Unknown]
  - Fatigue [Recovered/Resolved]
  - Memory impairment [Recovered/Resolved]
  - Anxiety [Recovered/Resolved]
  - Thyroid disorder [Recovering/Resolving]
